FAERS Safety Report 4406239-3 (Version None)
Quarter: 2004Q3

REPORT INFORMATION
  Report Type: 
  Country: None (occurrence: None)
  Receive Date: 20040723
  Receipt Date: 20021207
  Transmission Date: 20050211
  Serious: No
  Sender: FDA-Public Use
  Company Number: US-GLAXOSMITHKLINE-A0388660A

PATIENT
  Age: 66 Year
  Sex: Female
  Weight: 97.3 kg

DRUGS (7)
  1. AVANDIA [Suspect]
     Dosage: 4MG TWICE PER DAY
     Route: 048
     Dates: start: 20000214
  2. LOTREL [Concomitant]
  3. SPIRONOLACTONE [Concomitant]
  4. LORAZEPAM [Concomitant]
  5. SEREVENT [Concomitant]
  6. PROVENTIL [Concomitant]
  7. GLUCOTROL [Concomitant]

REACTIONS (2)
  - DYSPNOEA [None]
  - WEIGHT INCREASED [None]
